FAERS Safety Report 19232674 (Version 2)
Quarter: 2021Q2

REPORT INFORMATION
  Report Type: Report from Study
  Country: FI (occurrence: FI)
  Receive Date: 20210507
  Receipt Date: 20210615
  Transmission Date: 20210717
  Serious: Yes (Other)
  Sender: FDA-Public Use
  Company Number: FI-MYLANLABS-2021M1026742

PATIENT
  Age: 22 Year
  Sex: Male

DRUGS (5)
  1. LEPONEX [Suspect]
     Active Substance: CLOZAPINE
     Dosage: DOSE WAS HALVED
  2. LEPONEX [Suspect]
     Active Substance: CLOZAPINE
     Indication: SCHIZOPHRENIA
     Dosage: FAIRLY LARGE DOSES
  3. LEPONEX [Suspect]
     Active Substance: CLOZAPINE
     Dosage: UNK
     Dates: start: 2018
  4. OLANZAPINE. [Concomitant]
     Active Substance: OLANZAPINE
     Dosage: 5 MILLIGRAM, QD (ONCE A DAY)
  5. SOLIAN [Concomitant]
     Active Substance: AMISULPRIDE
     Dosage: 800 MILLIGRAM, BID (TWICE A DAY)

REACTIONS (2)
  - Pyrexia [Unknown]
  - Tuberculosis [Unknown]

NARRATIVE: CASE EVENT DATE: 2021
